FAERS Safety Report 18687803 (Version 1)
Quarter: 2020Q4

REPORT INFORMATION
  Report Type: Spontaneous
  Country: US (occurrence: US)
  Receive Date: 20201230
  Receipt Date: 20201230
  Transmission Date: 20210114
  Serious: Yes (Hospitalization)
  Sender: FDA-Public Use
  Company Number: None

PATIENT
  Age: 18 Year
  Weight: 51.44 kg

DRUGS (7)
  1. SENNA [Concomitant]
     Active Substance: SENNA LEAF\SENNOSIDES\SENNOSIDES A AND B
  2. OPDIVO [Concomitant]
     Active Substance: NIVOLUMAB
  3. MORPHINE [Suspect]
     Active Substance: MORPHINE
  4. MIRTAZAPINE. [Concomitant]
     Active Substance: MIRTAZAPINE
  5. ESTROGEN BLOCKER [Concomitant]
  6. TRANSCATHETER ARTERIAL CHEMOEMBOLIZATION [Suspect]
     Active Substance: DEVICE
  7. OXYCODONE [Suspect]
     Active Substance: OXYCODONE

REACTIONS (13)
  - Drug ineffective [None]
  - Inadequate analgesia [None]
  - Liver disorder [None]
  - Procedural pain [None]
  - Screaming [None]
  - Pneumonia [None]
  - Suicidal ideation [None]
  - Crying [None]
  - Transfusion [None]
  - Alopecia [None]
  - Fall [None]
  - White blood cell count decreased [None]
  - Drug dependence [None]

NARRATIVE: CASE EVENT DATE: 20200811
